FAERS Safety Report 11890665 (Version 1)
Quarter: 2016Q1

REPORT INFORMATION
  Report Type: Spontaneous
  Country: US (occurrence: US)
  Receive Date: 20160105
  Receipt Date: 20160105
  Transmission Date: 20160526
  Serious: Yes (Other)
  Sender: FDA-Public Use
  Company Number: US-ASTRAZENECA-2015SF32046

PATIENT
  Age: 32 Year
  Sex: Female
  Weight: 74.8 kg

DRUGS (8)
  1. SEROQUEL [Suspect]
     Active Substance: QUETIAPINE FUMARATE
     Indication: INSOMNIA
     Route: 048
  2. ATIVAN [Concomitant]
     Active Substance: LORAZEPAM
     Route: 048
  3. SEROQUEL [Suspect]
     Active Substance: QUETIAPINE FUMARATE
     Indication: INSOMNIA
     Route: 048
  4. SEROQUEL [Suspect]
     Active Substance: QUETIAPINE FUMARATE
     Indication: INSOMNIA
     Dosage: 200 MG, UNKNOWN TEVA
     Route: 065
  5. SEROQUEL [Suspect]
     Active Substance: QUETIAPINE FUMARATE
     Indication: INSOMNIA
     Dosage: LUPIN BRAND
     Route: 065
  6. SEROQUEL [Suspect]
     Active Substance: QUETIAPINE FUMARATE
     Indication: INSOMNIA
     Dosage: ACCORD
     Route: 065
  7. LUNESTA [Concomitant]
     Active Substance: ESZOPICLONE
     Route: 048
  8. SEROQUEL [Suspect]
     Active Substance: QUETIAPINE FUMARATE
     Indication: INSOMNIA
     Route: 048
     Dates: start: 1999

REACTIONS (10)
  - Product use issue [Unknown]
  - Therapeutic response changed [Unknown]
  - Tachyphrenia [Unknown]
  - Bruxism [Unknown]
  - Dysarthria [Unknown]
  - Mobility decreased [Unknown]
  - Insomnia [Unknown]
  - Mental disorder [Unknown]
  - Gait disturbance [Unknown]
  - Complication associated with device [Unknown]

NARRATIVE: CASE EVENT DATE: 1999
